FAERS Safety Report 16210454 (Version 1)
Quarter: 2019Q2

REPORT INFORMATION
  Report Type: Spontaneous
  Country: US (occurrence: US)
  Receive Date: 20190314
  Receipt Date: 20190314
  Transmission Date: 20190711
  Serious: Yes (Hospitalization)
  Sender: FDA-Public Use
  Company Number: None

PATIENT
  Age: 50 Year
  Sex: Male

DRUGS (1)
  1. MERCAPTOPURINE 50MG [Suspect]
     Active Substance: MERCAPTOPURINE
     Indication: COLITIS ULCERATIVE
     Dosage: ?          OTHER FREQUENCY:QAM;?
     Route: 048

REACTIONS (2)
  - Aneurysm [None]
  - Aortic aneurysm [None]

NARRATIVE: CASE EVENT DATE: 20181201
